FAERS Safety Report 17850246 (Version 2)
Quarter: 2020Q3

REPORT INFORMATION
  Report Type: Spontaneous
  Country: US (occurrence: US)
  Receive Date: 20200602
  Receipt Date: 20200709
  Transmission Date: 20201103
  Serious: No
  Sender: FDA-Public Use
  Company Number: US-HORIZON-ACT-0216-2020

PATIENT
  Age: 41 Year
  Sex: Female

DRUGS (10)
  1. FLUTICASONE. [Concomitant]
     Active Substance: FLUTICASONE
  2. LIDOCAINE/PRILOCAINE [Concomitant]
     Active Substance: LIDOCAINE\PRILOCAINE
  3. AZELASTINE. [Concomitant]
     Active Substance: AZELASTINE HYDROCHLORIDE
  4. ITRACONAZOLE. [Concomitant]
     Active Substance: ITRACONAZOLE
  5. ONDANSETRON [Concomitant]
     Active Substance: ONDANSETRON
  6. SULFAMETHOXAZOLE/ TRIMETHOPRIM [Concomitant]
     Active Substance: SULFAMETHOXAZOLE\TRIMETHOPRIM
  7. ACTIMMUNE [Suspect]
     Active Substance: INTERFERON GAMMA-1B
     Indication: NEUTROPHIL FUNCTION DISORDER
     Dosage: 100?G TIW
     Route: 058
     Dates: start: 20181017
  8. ALBUTEROL. [Concomitant]
     Active Substance: ALBUTEROL
  9. ELURYNG [Concomitant]
     Active Substance: ETHINYL ESTRADIOL\ETONOGESTREL
  10. EPINEPHRINE. [Concomitant]
     Active Substance: EPINEPHRINE

REACTIONS (5)
  - Fatigue [Not Recovered/Not Resolved]
  - Chills [Unknown]
  - Pyrexia [Unknown]
  - Influenza like illness [Not Recovered/Not Resolved]
  - Pruritus [Not Recovered/Not Resolved]
